FAERS Safety Report 8887282 (Version 1)
Quarter: 2012Q4

REPORT INFORMATION
  Report Type: Report from Study
  Country: DE (occurrence: DE)
  Receive Date: 20121105
  Receipt Date: 20121105
  Transmission Date: 20130627
  Serious: Yes (Hospitalization)
  Sender: FDA-Public Use
  Company Number: DE-BAXTER-2012BAX021606

PATIENT
  Age: 20 Year

DRUGS (16)
  1. ENDOXAN 1G [Suspect]
     Indication: HODGKIN^S LYMPHOMA
     Route: 042
  2. ENDOXAN 1G [Suspect]
     Route: 042
     Dates: start: 20091118
  3. CELLTOP_ETOPOSIDE 20.00 MG/ML_SOLUTION FOR INJECTION_VIAL, GLASS [Suspect]
     Indication: HODGKIN^S LYMPHOMA
     Route: 042
  4. CELLTOP_ETOPOSIDE 20.00 MG/ML_SOLUTION FOR INJECTION_VIAL, GLASS [Suspect]
     Route: 042
     Dates: start: 20091118
  5. BLEOMYCIN [Suspect]
     Indication: HODGKIN^S LYMPHOMA
     Route: 042
  6. BLEOMYCIN [Suspect]
     Route: 042
     Dates: start: 20091118
  7. RITUXIMAB [Suspect]
     Indication: HODGKIN^S LYMPHOMA
     Route: 042
  8. RITUXIMAB [Suspect]
     Route: 042
     Dates: start: 20091110
  9. DOXORUBIN [Suspect]
     Indication: HODGKIN^S LYMPHOMA
     Route: 042
  10. DOXORUBIN [Suspect]
     Route: 042
     Dates: start: 20091118
  11. VINCRISTINE [Suspect]
     Indication: HODGKIN^S LYMPHOMA
     Route: 042
  12. VINCRISTINE [Suspect]
     Route: 042
     Dates: start: 20091118
  13. PROCARBAZINE HYDROCHLORIDE [Suspect]
     Indication: HODGKIN^S LYMPHOMA
     Route: 042
  14. PROCARBAZINE HYDROCHLORIDE [Suspect]
     Route: 042
     Dates: start: 20091118
  15. PREDNISONE [Suspect]
     Indication: HODGKIN^S LYMPHOMA
     Route: 042
  16. PREDNISONE [Suspect]
     Route: 042
     Dates: start: 20091118

REACTIONS (3)
  - Febrile neutropenia [Recovered/Resolved]
  - H1N1 influenza [Recovered/Resolved]
  - Pneumonia [Recovered/Resolved]
